FAERS Safety Report 22530259 (Version 1)
Quarter: 2023Q2

REPORT INFORMATION
  Report Type: Spontaneous
  Country: KR (occurrence: KR)
  Receive Date: 20230607
  Receipt Date: 20230607
  Transmission Date: 20230722
  Serious: Yes (Hospitalization)
  Sender: FDA-Public Use
  Company Number: KR-ORGANON-O2306KOR000121

PATIENT
  Sex: Male
  Weight: 65 kg

DRUGS (10)
  1. COZAAR [Suspect]
     Active Substance: LOSARTAN POTASSIUM
     Dosage: 1 FORMULATION, 1 DAY
     Route: 048
     Dates: start: 20200617
  2. METFORMIN HYDROCHLORIDE [Concomitant]
     Active Substance: METFORMIN HYDROCHLORIDE
     Indication: Diabetes mellitus
     Dosage: 500 MILLIGRAM, 1 DAY
     Route: 048
     Dates: start: 20191111
  3. BUSPIRONE HYDROCHLORIDE [Concomitant]
     Active Substance: BUSPIRONE HYDROCHLORIDE
     Indication: Anxiety disorder
     Dosage: 1 FORMULATION, 1 DAY (UNOCATED TABLET)
     Route: 048
     Dates: start: 20170615
  4. CARVEDILOL [Concomitant]
     Active Substance: CARVEDILOL
     Dosage: 1 FORMULATION, 1 DAY (UNCOATED TABLET)
     Route: 048
     Dates: start: 20190615
  5. ACETYLCARNITINE HYDROCHLORIDE, L- [Concomitant]
     Active Substance: ACETYLCARNITINE HYDROCHLORIDE
     Dosage: 1 FORMULATION, 1 DAY (ENTERIC FILM-COATED TABLET)
     Route: 048
     Dates: start: 20200605
  6. ACETYLCARNITINE HYDROCHLORIDE, L- [Concomitant]
     Active Substance: ACETYLCARNITINE HYDROCHLORIDE
     Dosage: 500 MILLIGRAM, 1 DAY (ENTERIC FILM-COATED TABLET)
     Route: 048
     Dates: start: 20200617
  7. FOLIC ACID [Concomitant]
     Active Substance: FOLIC ACID
     Dosage: 1 MILLIGRAM, 1 DAY
     Route: 048
     Dates: start: 20191122
  8. CLOPIDOGREL BISULFATE [Concomitant]
     Active Substance: CLOPIDOGREL BISULFATE
     Dosage: 1 MILLIGRAM/SQ. METER, 1 DAY
     Route: 048
     Dates: start: 20200402
  9. LEVETIRACETAM [Concomitant]
     Active Substance: LEVETIRACETAM
     Dosage: 1 FORMULATION, Q12H (0.5 DAY)
     Route: 048
     Dates: start: 20200406
  10. ROSUVASTATIN CALCIUM [Concomitant]
     Active Substance: ROSUVASTATIN CALCIUM
     Indication: Hyperlipidaemia
     Dosage: 1 FORMULATION, 1 DAY
     Route: 048
     Dates: start: 20200617

REACTIONS (1)
  - Prostate cancer [Recovering/Resolving]

NARRATIVE: CASE EVENT DATE: 20200617
